FAERS Safety Report 24895030 (Version 1)
Quarter: 2025Q1

REPORT INFORMATION
  Report Type: Other
  Country: US (occurrence: US)
  Receive Date: 20250128
  Receipt Date: 20250128
  Transmission Date: 20250408
  Serious: Yes (Other)
  Sender: COREPHARMA LLC
  Company Number: US-CorePharma LLC-2169926

PATIENT
  Age: 48 Year
  Sex: Female

DRUGS (2)
  1. SUMATRIPTAN SUCCINATE [Suspect]
     Active Substance: SUMATRIPTAN SUCCINATE
     Indication: Migraine
  2. COBIMETINIB [Concomitant]
     Active Substance: COBIMETINIB

REACTIONS (1)
  - Colitis ischaemic [Unknown]
